FAERS Safety Report 4648149-2 (Version None)
Quarter: 2005Q2

REPORT INFORMATION
  Report Type: 
  Country: None (occurrence: None)
  Receive Date: 20050331
  Receipt Date: 20041230
  Transmission Date: 20051028
  Serious: Yes (Hospitalization)
  Sender: FDA-Public Use
  Company Number: 04P-163-0283053

PATIENT
  Age: 44 Year
  Sex: Male
  Weight: 97.5234 kg

DRUGS (2)
  1. HUMIRA [Suspect]
     Indication: PSORIATIC ARTHROPATHY
     Dosage: 40 MG, 1 IN 2 WK, SUBCUTANEOUS
     Route: 058
     Dates: start: 20040801, end: 20041107
  2. BUCINDOLOL HYDROCHLORIDE [Concomitant]

REACTIONS (5)
  - FLANK PAIN [None]
  - GASTROINTESTINAL INFECTION [None]
  - PYREXIA [None]
  - RENAL CYST [None]
  - STAPHYLOCOCCAL SEPSIS [None]
